FAERS Safety Report 11020814 (Version 1)
Quarter: 2015Q2

REPORT INFORMATION
  Report Type: Report from Study
  Country: CA (occurrence: CA)
  Receive Date: 20150413
  Receipt Date: 20150413
  Transmission Date: 20150821
  Serious: Yes (Other)
  Sender: FDA-Public Use
  Company Number: CA-BRISTOL-MYERS SQUIBB COMPANY-15310816

PATIENT
  Age: 52 Year
  Sex: Female

DRUGS (9)
  1. LANTUS [Concomitant]
     Active Substance: INSULIN GLARGINE
     Indication: PRODUCT USED FOR UNKNOWN INDICATION
     Route: 065
  2. LIPITOR [Concomitant]
     Active Substance: ATORVASTATIN CALCIUM
     Indication: PRODUCT USED FOR UNKNOWN INDICATION
     Route: 065
  3. COUMADIN [Concomitant]
     Active Substance: WARFARIN SODIUM
     Indication: PRODUCT USED FOR UNKNOWN INDICATION
     Dosage: 4 MG, QD
     Route: 065
  4. METOPROLOL [Concomitant]
     Active Substance: METOPROLOL
     Indication: PRODUCT USED FOR UNKNOWN INDICATION
     Route: 065
  5. LOSEC [Concomitant]
     Active Substance: OMEPRAZOLE
     Indication: PRODUCT USED FOR UNKNOWN INDICATION
     Route: 065
  6. VITAMIN D [Concomitant]
     Active Substance: CHOLECALCIFEROL
     Indication: PRODUCT USED FOR UNKNOWN INDICATION
     Route: 065
  7. COZAAR [Concomitant]
     Active Substance: LOSARTAN POTASSIUM
     Indication: PRODUCT USED FOR UNKNOWN INDICATION
     Route: 065
  8. COATED ASPIRIN [Concomitant]
     Indication: PRODUCT USED FOR UNKNOWN INDICATION
     Route: 065
  9. ABATACEPT [Suspect]
     Active Substance: ABATACEPT
     Indication: RHEUMATOID ARTHRITIS
     Dosage: RECENTDOSE28S10,17D10,13JA11,11F11,05MAY11,23AU12  NOOFINF:48,EXP:AP15,JUL2015:BATCH:2L70269
     Route: 042
     Dates: start: 20090112

REACTIONS (16)
  - Sinus congestion [Unknown]
  - Dizziness [Unknown]
  - Abdominal pain [Unknown]
  - Arthralgia [Unknown]
  - Abdominal discomfort [Unknown]
  - Blood glucose increased [Recovering/Resolving]
  - Malaise [Unknown]
  - Cold sweat [Unknown]
  - Upper limb fracture [Unknown]
  - Insomnia [Unknown]
  - Eructation [Unknown]
  - Musculoskeletal pain [Not Recovered/Not Resolved]
  - Influenza [Not Recovered/Not Resolved]
  - Drug ineffective [Unknown]
  - Fall [Unknown]
  - Diarrhoea [Not Recovered/Not Resolved]

NARRATIVE: CASE EVENT DATE: 20101125
